FAERS Safety Report 4401017-3 (Version None)
Quarter: 2004Q3

REPORT INFORMATION
  Report Type: 
  Country: None (occurrence: None)
  Receive Date: 20040907
  Receipt Date: 20030922
  Transmission Date: 20050211
  Serious: No
  Sender: FDA-Public Use
  Company Number: US-BRISTOL-MYERS SQUIBB COMPANY-12390043

PATIENT
  Age: 73 Year
  Sex: Female
  Weight: 57 kg

DRUGS (9)
  1. COUMADIN [Suspect]
     Indication: HEART VALVE OPERATION
     Dosage: 2.5MG QD FOR 5 DAYS + 5MG X 2 DAYS
     Route: 048
     Dates: start: 20030415
  2. ASPIRIN [Concomitant]
  3. LASIX [Concomitant]
  4. CAPTOPRIL [Concomitant]
  5. COREG [Concomitant]
  6. ZYRTEC [Concomitant]
  7. POTASSIUM [Concomitant]
  8. AMBIEN [Concomitant]
  9. STRESS TABS [Concomitant]

REACTIONS (3)
  - ALOPECIA [None]
  - CONTUSION [None]
  - HAEMORRHAGE SUBCUTANEOUS [None]
